FAERS Safety Report 25337326 (Version 1)
Quarter: 2025Q2

REPORT INFORMATION
  Report Type: Spontaneous
  Country: US (occurrence: US)
  Receive Date: 20250520
  Receipt Date: 20250520
  Transmission Date: 20250716
  Serious: No
  Sender: GUERBET
  Company Number: US-GUERBET / LLC-US-20250042

PATIENT
  Age: 53 Year
  Sex: Female
  Weight: 76.2 kg

DRUGS (1)
  1. ELUCIREM [Suspect]
     Active Substance: GADOPICLENOL
     Indication: Magnetic resonance imaging hepatobiliary
     Route: 042
     Dates: start: 20250226, end: 20250226

REACTIONS (1)
  - Urticaria [Recovered/Resolved]

NARRATIVE: CASE EVENT DATE: 20250226
